FAERS Safety Report 20620519 (Version 1)
Quarter: 2022Q1

REPORT INFORMATION
  Report Type: Spontaneous
  Country: GB (occurrence: GB)
  Receive Date: 20220322
  Receipt Date: 20220322
  Transmission Date: 20220423
  Serious: Yes (Hospitalization)
  Sender: FDA-Public Use
  Company Number: None

PATIENT
  Sex: Female

DRUGS (7)
  1. CISPLATIN [Suspect]
     Active Substance: CISPLATIN
     Indication: Chemotherapy
     Dosage: CYCLE 1 GIVEN 20/1/22
     Dates: start: 20220120
  2. GEMCITABINE [Suspect]
     Active Substance: GEMCITABINE
     Indication: Chemotherapy
     Dosage: CYCLE 1 GIVEN 20/1/22
     Dates: start: 20220120
  3. AMLODIPINE [Concomitant]
     Active Substance: AMLODIPINE BESYLATE
  4. BALNEUM PLUS CREAM [Concomitant]
     Dosage: APPLY TWICE A DAY AS MOISTURISER - USES OD
  5. OMEPRAZOLE [Concomitant]
     Active Substance: OMEPRAZOLE
  6. RAMIPRIL [Concomitant]
     Active Substance: RAMIPRIL
  7. SOLIFENACIN [Concomitant]
     Active Substance: SOLIFENACIN

REACTIONS (1)
  - Neutropenic sepsis [Unknown]
